FAERS Safety Report 4604079-3 (Version None)
Quarter: 2005Q1

REPORT INFORMATION
  Report Type: 
  Country: None (occurrence: None)
  Receive Date: 20050309
  Receipt Date: 20050309
  Transmission Date: 20050727
  Serious: Yes (Other)
  Sender: FDA-Public Use
  Company Number: None

PATIENT

DRUGS (1)
  1. ACCUPRIL [Suspect]

REACTIONS (3)
  - COUGH [None]
  - DYSPEPSIA [None]
  - HEADACHE [None]
